FAERS Safety Report 8775052 (Version 1)
Quarter: 2012Q4

REPORT INFORMATION
  Report Type: 
  Country: AT (occurrence: AT)
  Receive Date: 20120910
  Receipt Date: 20120910
  Transmission Date: 20130627
  Serious: Yes (Hospitalization)
  Sender: FDA-Public Use
  Company Number: AT-JNJFOC-20120901630

PATIENT
  Age: 72 Year
  Sex: Female

DRUGS (9)
  1. REMICADE [Suspect]
     Indication: CROHN^S DISEASE
     Route: 042
     Dates: start: 2012
  2. REMICADE [Suspect]
     Indication: CROHN^S DISEASE
     Route: 042
  3. PANTOLOC [Concomitant]
     Indication: CROHN^S DISEASE
     Dosage: 1-0-0
     Route: 048
  4. NICORANDIL [Concomitant]
     Indication: HYPERTENSION
     Dosage: 1-0-0
     Route: 048
  5. NICORANDIL [Concomitant]
     Indication: HYPERTENSION
     Dosage: 1-0-0
     Route: 048
  6. NORVASC [Concomitant]
     Indication: HYPERTENSION
     Dosage: 1-0-1
     Route: 048
  7. LIPCOR [Concomitant]
     Indication: HYPERTENSION
     Dosage: 0-0-1
     Route: 048
  8. THROMBO ASS [Concomitant]
     Indication: PRODUCT USED FOR UNKNOWN INDICATION
     Dosage: 1-0-1
     Route: 048
  9. URBASON [Concomitant]
     Indication: CROHN^S DISEASE
     Dosage: 1/2-0-0
     Route: 048

REACTIONS (1)
  - Ischaemic cerebral infarction [Unknown]
